FAERS Safety Report 5480814-X (Version None)
Quarter: 2007Q4

REPORT INFORMATION
  Report Type: 
  Country: None (occurrence: None)
  Receive Date: 20071009
  Receipt Date: 20070925
  Transmission Date: 20080405
  Serious: No
  Sender: FDA-Public Use
  Company Number: US-BOEHRINGER INGELHEIM PHARMACEUTICALS, INC.-2007-BP-07300BP

PATIENT
  Sex: Male

DRUGS (13)
  1. FLOMAX [Suspect]
     Indication: BENIGN PROSTATIC HYPERPLASIA
     Route: 048
     Dates: start: 20070401
  2. FLOMAX [Suspect]
     Indication: POLLAKIURIA
  3. ALLAPURINOL [Concomitant]
  4. LISINOPRIL [Concomitant]
  5. HYDROCHLOROTHIAZIDE [Concomitant]
  6. LOPID [Concomitant]
  7. METFORMIN HCL [Concomitant]
  8. ASPIRIN [Concomitant]
  9. COREG [Concomitant]
  10. LUNESTA [Concomitant]
  11. VYTORIN [Concomitant]
  12. LEVITRA [Concomitant]
  13. ENABLEX [Concomitant]

REACTIONS (4)
  - DRUG INEFFECTIVE [None]
  - POLLAKIURIA [None]
  - RESIDUAL URINE [None]
  - RETROGRADE EJACULATION [None]
